FAERS Safety Report 19526283 (Version 2)
Quarter: 2021Q3

REPORT INFORMATION
  Report Type: Spontaneous
  Country: BE (occurrence: BE)
  Receive Date: 20210713
  Receipt Date: 20210901
  Transmission Date: 20211014
  Serious: Yes (Hospitalization, Other)
  Sender: FDA-Public Use
  Company Number: IT-AMGEN-ITASP2021104037

PATIENT
  Age: 14 Year
  Sex: Male

DRUGS (2)
  1. XGEVA [Suspect]
     Active Substance: DENOSUMAB
     Indication: OFF LABEL USE
  2. XGEVA [Suspect]
     Active Substance: DENOSUMAB
     Indication: BONE GIANT CELL TUMOUR BENIGN
     Dosage: 100 MILLIGRAM, QMO
     Route: 058

REACTIONS (4)
  - Hypomagnesaemia [Recovered/Resolved]
  - Off label use [Unknown]
  - Nephrocalcinosis [Recovered/Resolved]
  - Hypercalcaemia [Recovered/Resolved]
